FAERS Safety Report 5190492-5 (Version None)
Quarter: 2006Q4

REPORT INFORMATION
  Report Type: 
  Country: None (occurrence: None)
  Receive Date: 20061222
  Receipt Date: 20060721
  Transmission Date: 20070319
  Serious: Yes (Hospitalization, Other)
  Sender: FDA-Public Use
  Company Number: JP-GLAXOSMITHKLINE-B0432089A

PATIENT
  Age: 35 Year
  Sex: Female

DRUGS (2)
  1. BLINDED TRIAL MEDICATION [Suspect]
     Indication: SOCIAL PHOBIA
     Dates: start: 20060330, end: 20060712
  2. PAXIL [Suspect]
     Indication: SOCIAL PHOBIA
     Dosage: 20MG PER DAY
     Route: 048
     Dates: start: 20060330, end: 20060720

REACTIONS (3)
  - ABORTION MISSED [None]
  - CHROMOSOME ABNORMALITY [None]
  - DRUG EXPOSURE DURING PREGNANCY [None]
